FAERS Safety Report 6421752-5 (Version None)
Quarter: 2009Q4

REPORT INFORMATION
  Report Type: 
  Country: None (occurrence: None)
  Receive Date: 20091030
  Receipt Date: 20091008
  Transmission Date: 20100525
  Serious: Yes (Other)
  Sender: FDA-Public Use
  Company Number: PL-ROCHE-664979

PATIENT
  Age: 33 Year
  Sex: Male

DRUGS (4)
  1. RIBAVIRIN [Suspect]
     Route: 065
  2. PEG-INTRON [Suspect]
     Route: 065
  3. RISPERIDONE [Concomitant]
  4. ZUCLOPENTHIXOL [Concomitant]

REACTIONS (3)
  - DYSKINESIA [None]
  - PARANOIA [None]
  - SUICIDAL IDEATION [None]
